FAERS Safety Report 25286855 (Version 4)
Quarter: 2025Q3

REPORT INFORMATION
  Report Type: Spontaneous
  Country: US (occurrence: US)
  Receive Date: 20250509
  Receipt Date: 20250803
  Transmission Date: 20251021
  Serious: Yes (Other)
  Sender: ALEXION PHARMACEUTICALS
  Company Number: US-AstraZeneca-CH-00864765AP

PATIENT
  Age: 62 Year
  Sex: Female

DRUGS (1)
  1. SYMBICORT [Suspect]
     Active Substance: BUDESONIDE\FORMOTEROL FUMARATE DIHYDRATE
     Route: 065

REACTIONS (9)
  - Intracranial aneurysm [Unknown]
  - Brain fog [Unknown]
  - Memory impairment [Unknown]
  - Diplopia [Unknown]
  - Lymphadenopathy [Unknown]
  - Incorrect dose administered [Unknown]
  - Wrong technique in device usage process [Unknown]
  - Product use issue [Unknown]
  - Device delivery system issue [Unknown]
